FAERS Safety Report 5688782-2 (Version None)
Quarter: 2008Q1

REPORT INFORMATION
  Report Type: 
  Country: None (occurrence: None)
  Receive Date: 20080331
  Receipt Date: 20080318
  Transmission Date: 20080703
  Serious: No
  Sender: FDA-Public Use
  Company Number: US-AMGEN-QUU267036

PATIENT
  Sex: Female
  Weight: 66.3 kg

DRUGS (5)
  1. ENBREL [Suspect]
     Indication: RHEUMATOID ARTHRITIS
     Route: 058
     Dates: start: 20080103
  2. NEXIUM [Concomitant]
  3. ZOCOR [Concomitant]
  4. PERCOCET [Concomitant]
  5. LYRICA [Concomitant]

REACTIONS (1)
  - BREAST TENDERNESS [None]
